FAERS Safety Report 14348007 (Version 6)
Quarter: 2018Q2

REPORT INFORMATION
  Report Type: Spontaneous
  Country: CZ (occurrence: CZ)
  Receive Date: 20180103
  Receipt Date: 20180529
  Transmission Date: 20180711
  Serious: Yes (Other)
  Sender: FDA-Public Use
  Company Number: CZ-PFIZER INC-2017548050

PATIENT
  Age: 60 Year
  Sex: Male

DRUGS (12)
  1. VANCOMYCIN HCL [Suspect]
     Active Substance: VANCOMYCIN HYDROCHLORIDE
     Indication: ANTIBIOTIC THERAPY
     Dosage: 1.5 G, Q12H
     Route: 042
     Dates: start: 2017
  2. GENTAMICIN. [Suspect]
     Active Substance: GENTAMICIN
     Dosage: UNK
     Dates: start: 2017, end: 2017
  3. CIPROFLOXACIN. [Suspect]
     Active Substance: CIPROFLOXACIN
     Indication: SALMONELLA TEST POSITIVE
  4. HEPARIN [Concomitant]
     Active Substance: HEPARIN SODIUM
     Indication: HAEMARTHROSIS
     Dosage: UNK
  5. LINEZOLID. [Suspect]
     Active Substance: LINEZOLID
     Indication: ENDOCARDITIS
     Dosage: UNK
     Dates: start: 2017, end: 2017
  6. CIPROFLOXACIN. [Suspect]
     Active Substance: CIPROFLOXACIN
     Indication: ENDOCARDITIS
     Dosage: 500 MG, 3X/DAY (EVERY 8 HOURS)
     Route: 048
     Dates: start: 2017, end: 2017
  7. GENTAMICIN. [Suspect]
     Active Substance: GENTAMICIN
     Indication: ENDOCARDITIS
     Dosage: UNK
     Dates: start: 2017, end: 2017
  8. PIPERACILLIN/TAZOBACTAM [Suspect]
     Active Substance: PIPERACILLIN SODIUM\TAZOBACTAM SODIUM
     Indication: ENDOCARDITIS
     Dosage: UNK
     Dates: start: 2017, end: 2017
  9. VANCOMYCIN HCL [Suspect]
     Active Substance: VANCOMYCIN HYDROCHLORIDE
     Indication: SALMONELLA TEST POSITIVE
     Dosage: UNK
     Dates: end: 2017
  10. AMPICILLIN SODIUM/SULBACTAM SODIUM [Suspect]
     Active Substance: AMPICILLIN SODIUM\SULBACTAM SODIUM
     Indication: ENDOCARDITIS
     Dosage: UNK
     Dates: start: 2017, end: 2017
  11. CIPROFLOXACIN. [Suspect]
     Active Substance: CIPROFLOXACIN
     Indication: ANTIBIOTIC THERAPY
     Dosage: UNK
     Dates: start: 2017, end: 2017
  12. AMPICILLIN [Suspect]
     Active Substance: AMPICILLIN
     Indication: ENDOCARDITIS
     Dosage: UNK
     Dates: start: 2017, end: 2017

REACTIONS (26)
  - Nutritional condition abnormal [Recovering/Resolving]
  - Deep vein thrombosis [None]
  - Pyrexia [None]
  - Blood bilirubin increased [None]
  - Aspartate aminotransferase increased [None]
  - Coagulopathy [None]
  - Haemoglobin decreased [None]
  - Arthritis [None]
  - Joint effusion [None]
  - Salmonella test positive [None]
  - Enterococcus test positive [None]
  - Depression [None]
  - Blood alkaline phosphatase increased [None]
  - Decreased appetite [Recovered/Resolved]
  - Alanine aminotransferase increased [None]
  - Vertigo [None]
  - Mobility decreased [None]
  - Hepatotoxicity [Recovered/Resolved]
  - Drug ineffective [Recovered/Resolved]
  - Diarrhoea [Recovered/Resolved]
  - Epistaxis [None]
  - Device leakage [None]
  - Arthritis bacterial [None]
  - Weight decreased [Unknown]
  - Gait disturbance [None]
  - Blood albumin decreased [None]

NARRATIVE: CASE EVENT DATE: 2017
